FAERS Safety Report 8168401-6 (Version None)
Quarter: 2012Q1

REPORT INFORMATION
  Report Type: 
  Country: None (occurrence: None)
  Receive Date: 20120227
  Receipt Date: 20120222
  Transmission Date: 20120608
  Serious: No
  Sender: FDA-Public Use
  Company Number: ES-MERCK-1202ESP00026

PATIENT
  Age: 9 Month
  Sex: Female

DRUGS (2)
  1. BUDESONIDE [Concomitant]
     Indication: BRONCHITIS
     Route: 055
  2. SINGULAIR [Suspect]
     Indication: BRONCHITIS
     Route: 048
     Dates: start: 20111201, end: 20120101

REACTIONS (2)
  - HENOCH-SCHONLEIN PURPURA [None]
  - DIARRHOEA [None]
